FAERS Safety Report 16636856 (Version 1)
Quarter: 2019Q3

REPORT INFORMATION
  Report Type: Report from Study
  Country: None (occurrence: BR)
  Receive Date: 20190726
  Receipt Date: 20190726
  Transmission Date: 20191004
  Serious: Yes (Death, Hospitalization, Disabling, Other)
  Sender: FDA-Public Use
  Company Number: BR-ABBVIE-19K-020-2867353-00

PATIENT
  Age: 44 Year
  Sex: Female
  Weight: 45 kg

DRUGS (1)
  1. HUMIRA [Suspect]
     Active Substance: ADALIMUMAB
     Indication: RHEUMATOID ARTHRITIS
     Route: 058
     Dates: start: 20050101, end: 201906

REACTIONS (18)
  - Ear infection [Fatal]
  - Pain [Fatal]
  - Musculoskeletal stiffness [Not Recovered/Not Resolved]
  - Tinnitus [Fatal]
  - Diabetes mellitus [Fatal]
  - Confusional state [Fatal]
  - Headache [Fatal]
  - Mobility decreased [Not Recovered/Not Resolved]
  - Nosocomial infection [Not Recovered/Not Resolved]
  - Swelling [Not Recovered/Not Resolved]
  - Ear pain [Fatal]
  - Cerebrovascular accident [Fatal]
  - Influenza [Recovered/Resolved]
  - Diarrhoea [Recovering/Resolving]
  - Crying [Fatal]
  - Neuralgia [Fatal]
  - Pneumonia [Not Recovered/Not Resolved]
  - Insomnia [Recovered/Resolved]

NARRATIVE: CASE EVENT DATE: 201906
